FAERS Safety Report 8916586 (Version 1)
Quarter: 2012Q4

REPORT INFORMATION
  Report Type: 
  Country: FR (occurrence: FR)
  Receive Date: 20121120
  Receipt Date: 20121120
  Transmission Date: 20130627
  Serious: Yes (Hospitalization)
  Sender: FDA-Public Use
  Company Number: FR-MERCK-1211FRA007881

PATIENT

DRUGS (1)
  1. JANUVIA [Suspect]

REACTIONS (1)
  - Lipase increased [Unknown]
